FAERS Safety Report 7299780-X (Version None)
Quarter: 2011Q1

REPORT INFORMATION
  Report Type: 
  Country: None (occurrence: None)
  Receive Date: 20110217
  Receipt Date: 20110208
  Transmission Date: 20110831
  Serious: Yes (Other)
  Sender: FDA-Public Use
  Company Number: SE-ASTRAZENECA-2011SE07248

PATIENT
  Age: 60 Year
  Sex: Female

DRUGS (5)
  1. ATACAND [Suspect]
     Indication: ESSENTIAL HYPERTENSION
     Route: 048
     Dates: end: 20101123
  2. DYGRATYL [Concomitant]
  3. LEVOTHYROXINE SODIUM [Concomitant]
  4. LIPITOR [Concomitant]
  5. FENANTOIN RECIP [Concomitant]

REACTIONS (2)
  - PHARYNGEAL OEDEMA [None]
  - ANGIOEDEMA [None]
